FAERS Safety Report 12109108 (Version 9)
Quarter: 2019Q1

REPORT INFORMATION
  Report Type: Report from Study
  Country: BR (occurrence: BR)
  Receive Date: 20160224
  Receipt Date: 20190326
  Transmission Date: 20190417
  Serious: Yes (Hospitalization, Other)
  Sender: FDA-Public Use
  Company Number: PHHY2016BR018138

PATIENT
  Age: 56 Year
  Sex: Male
  Weight: 82 kg

DRUGS (15)
  1. NEBIDO [Concomitant]
     Active Substance: TESTOSTERONE UNDECANOATE
     Indication: PRODUCT USED FOR UNKNOWN INDICATION
     Route: 065
  2. NESINA [Concomitant]
     Active Substance: ALOGLIPTIN BENZOATE
     Indication: PRODUCT USED FOR UNKNOWN INDICATION
     Dosage: 25 MG, UNK
     Route: 065
  3. DIAZEPAM. [Concomitant]
     Active Substance: DIAZEPAM
     Indication: PRODUCT USED FOR UNKNOWN INDICATION
     Dosage: 10 MG, UNK
     Route: 048
  4. SELOZOK [Concomitant]
     Active Substance: METOPROLOL SUCCINATE
     Indication: HYPERTENSION
     Dosage: 1 DF, QD
     Route: 048
  5. SANDOSTATIN LAR DEPOT [Suspect]
     Active Substance: OCTREOTIDE ACETATE
     Dosage: 20 MG, QMO/EVERY 28 DAYS
     Route: 030
     Dates: start: 20181222
  6. PANTOPRAZOLE [Concomitant]
     Active Substance: PANTOPRAZOLE
     Indication: PROPHYLAXIS
     Dosage: 1 DF, QD
     Route: 048
     Dates: start: 2011
  7. SANDOSTATIN LAR DEPOT [Suspect]
     Active Substance: OCTREOTIDE ACETATE
     Indication: ACROMEGALY
     Dosage: 20 MG, QMO/EVERY 28 DAYS
     Route: 030
     Dates: start: 2011
  8. DOSTINEX [Concomitant]
     Active Substance: CABERGOLINE
     Indication: PRODUCT USED FOR UNKNOWN INDICATION
     Route: 065
  9. SANDOSTATIN LAR DEPOT [Suspect]
     Active Substance: OCTREOTIDE ACETATE
     Dosage: 10 MG, QMO
     Route: 030
     Dates: start: 201202
  10. SANDOSTATIN LAR DEPOT [Suspect]
     Active Substance: OCTREOTIDE ACETATE
     Dosage: 20 MG, QMO/EVERY 28 DAYS
     Route: 030
     Dates: start: 2012
  11. ATENOLOL. [Concomitant]
     Active Substance: ATENOLOL
     Indication: PRODUCT USED FOR UNKNOWN INDICATION
     Dosage: 25 MG, UNK
     Route: 048
  12. DOSS [Concomitant]
     Active Substance: DOCUSATE SODIUM
     Indication: PRODUCT USED FOR UNKNOWN INDICATION
     Dosage: 1000 IU, UNK
     Route: 065
  13. SANDOSTATIN LAR DEPOT [Suspect]
     Active Substance: OCTREOTIDE ACETATE
     Dosage: 20 MG, QMO/EVERY 28 DAYS
     Route: 030
     Dates: start: 20190122
  14. VALIUM [Concomitant]
     Active Substance: DIAZEPAM
     Indication: PRODUCT USED FOR UNKNOWN INDICATION
     Dosage: 1 DF, QD
     Route: 048
     Dates: start: 2011
  15. JANUVIA [Concomitant]
     Active Substance: SITAGLIPTIN PHOSPHATE
     Indication: DIABETES MELLITUS
     Dosage: 2 DF, QD
     Route: 048
     Dates: start: 201712

REACTIONS (47)
  - Dyspnoea [Unknown]
  - Autonomic nervous system imbalance [Unknown]
  - Spleen disorder [Unknown]
  - Limb discomfort [Unknown]
  - Pain in extremity [Recovered/Resolved]
  - Arrhythmia [Unknown]
  - Hypertension [Not Recovered/Not Resolved]
  - Drug intolerance [Unknown]
  - Hypoaesthesia [Recovered/Resolved]
  - Vomiting [Unknown]
  - Diabetes mellitus [Unknown]
  - Vitamin D decreased [Not Recovered/Not Resolved]
  - Blood bilirubin abnormal [Not Recovered/Not Resolved]
  - Blood testosterone decreased [Not Recovered/Not Resolved]
  - Flushing [Not Recovered/Not Resolved]
  - Headache [Not Recovered/Not Resolved]
  - Blood cholesterol decreased [Unknown]
  - Nausea [Unknown]
  - Chest pain [Not Recovered/Not Resolved]
  - Cholelithiasis [Not Recovered/Not Resolved]
  - Gastrointestinal disorder [Unknown]
  - Pancreatic disorder [Unknown]
  - Dysphagia [Unknown]
  - Hypersensitivity [Unknown]
  - Musculoskeletal pain [Recovered/Resolved]
  - Laryngeal disorder [Unknown]
  - Insulin-like growth factor increased [Recovering/Resolving]
  - Dizziness [Unknown]
  - Abdominal pain [Unknown]
  - Thyroid mass [Not Recovered/Not Resolved]
  - Nephrolithiasis [Not Recovered/Not Resolved]
  - Neoplasm progression [Unknown]
  - Musculoskeletal stiffness [Unknown]
  - Mobility decreased [Recovered/Resolved]
  - Muscle contractions involuntary [Recovered/Resolved]
  - Blood glucose increased [Not Recovered/Not Resolved]
  - Myocardial infarction [Recovering/Resolving]
  - Abdominal discomfort [Not Recovered/Not Resolved]
  - Androgen deficiency [Unknown]
  - Malaise [Recovered/Resolved]
  - Fibromyalgia [Unknown]
  - Pain [Recovered/Resolved]
  - Blood growth hormone increased [Recovered/Resolved]
  - Troponin increased [Not Recovered/Not Resolved]
  - Haemochromatosis [Unknown]
  - Application site pain [Unknown]
  - Diarrhoea [Unknown]

NARRATIVE: CASE EVENT DATE: 2012
